FAERS Safety Report 11730222 (Version 1)
Quarter: 2015Q4

REPORT INFORMATION
  Report Type: Report from Study
  Country: CA (occurrence: CA)
  Receive Date: 20151112
  Receipt Date: 20151112
  Transmission Date: 20160304
  Serious: Yes (Hospitalization, Other)
  Sender: FDA-Public Use
  Company Number: CA-GILEAD-2015-0134057

PATIENT
  Age: 67 Year
  Sex: Male
  Weight: 98 kg

DRUGS (5)
  1. IDELALISIB [Suspect]
     Active Substance: IDELALISIB
     Dosage: 150 MG, BID
     Route: 048
     Dates: start: 20141119, end: 20141204
  2. AVALIDE [Concomitant]
     Active Substance: HYDROCHLOROTHIAZIDE\IRBESARTAN
     Dosage: UNK
     Dates: start: 20130301
  3. BENDAMUSTINE [Suspect]
     Active Substance: BENDAMUSTINE
     Indication: NON-HODGKIN^S LYMPHOMA UNSPECIFIED HISTOLOGY INDOLENT
     Dosage: 190 MG, CYCLICAL
     Route: 042
     Dates: start: 20141120, end: 20150121
  4. RITUXIMAB [Suspect]
     Active Substance: RITUXIMAB
     Indication: NON-HODGKIN^S LYMPHOMA UNSPECIFIED HISTOLOGY INDOLENT
     Dosage: 800 MG, CYCLICAL
     Route: 042
     Dates: start: 20141120, end: 20150121
  5. IDELALISIB [Suspect]
     Active Substance: IDELALISIB
     Indication: NON-HODGKIN^S LYMPHOMA UNSPECIFIED HISTOLOGY INDOLENT
     Dosage: 100 MG, UNK
     Route: 048
     Dates: start: 20150107, end: 20150121

REACTIONS (4)
  - Pneumonia [Recovered/Resolved]
  - Bacteraemia [Recovered/Resolved]
  - Sinusitis [Recovered/Resolved]
  - Respiratory syncytial virus infection [Recovered/Resolved]

NARRATIVE: CASE EVENT DATE: 20150121
